FAERS Safety Report 10837143 (Version 1)
Quarter: 2015Q1

REPORT INFORMATION
  Report Type: Report from Study
  Country: US (occurrence: US)
  Receive Date: 20150219
  Receipt Date: 20150219
  Transmission Date: 20150721
  Serious: No
  Sender: FDA-Public Use
  Company Number: US-ABBVIE-14P-163-1222677-00

PATIENT
  Age: 42 Year
  Sex: Female

DRUGS (9)
  1. PREDNISONE. [Concomitant]
     Active Substance: PREDNISONE
     Indication: COLITIS ULCERATIVE
     Dosage: TAPERING DOSE
  2. HUMIRA [Suspect]
     Active Substance: ADALIMUMAB
     Indication: COLITIS ULCERATIVE
     Dates: start: 20140220
  3. MARINOL [Concomitant]
     Active Substance: DRONABINOL
     Indication: NAUSEA
  4. LIDOCAINE. [Concomitant]
     Active Substance: LIDOCAINE
     Indication: PROCTALGIA
  5. HYDROCORTISONE AND METHYLAMINE [Concomitant]
     Indication: COLITIS
  6. MARINOL [Concomitant]
     Active Substance: DRONABINOL
     Indication: VOMITING
  7. MARINOL [Concomitant]
     Active Substance: DRONABINOL
     Indication: DIARRHOEA
  8. MARINOL [Concomitant]
     Active Substance: DRONABINOL
     Indication: COLITIS
  9. DILAUDID [Concomitant]
     Active Substance: HYDROMORPHONE HYDROCHLORIDE
     Indication: PAIN
     Dosage: EVERY SIX HOURS

REACTIONS (2)
  - Diarrhoea [Recovered/Resolved]
  - Pain in extremity [Not Recovered/Not Resolved]

NARRATIVE: CASE EVENT DATE: 20140402
